FAERS Safety Report 19004310 (Version 1)
Quarter: 2021Q1

REPORT INFORMATION
  Report Type: Spontaneous
  Country: ME (occurrence: ME)
  Receive Date: 20210313
  Receipt Date: 20210313
  Transmission Date: 20210420
  Serious: Yes (Death, Other)
  Sender: FDA-Public Use
  Company Number: ME-LUPIN PHARMACEUTICALS INC.-2021-03316

PATIENT
  Sex: Female
  Weight: .78 kg

DRUGS (1)
  1. CEFTRIAXONE. [Suspect]
     Active Substance: CEFTRIAXONE
     Indication: SERRATIA INFECTION
     Dosage: 2 GRAM, QD
     Route: 064

REACTIONS (11)
  - Premature baby [Unknown]
  - Low birth weight baby [Unknown]
  - Bradycardia neonatal [Unknown]
  - Leukocytosis [Unknown]
  - Hypotonia neonatal [Unknown]
  - Oedema neonatal [Unknown]
  - Infantile apnoea [Unknown]
  - Haematoma [Unknown]
  - Respiratory failure [Fatal]
  - Foetal exposure during pregnancy [Unknown]
  - Altered state of consciousness [Unknown]
